FAERS Safety Report 8973405 (Version 1)
Quarter: 2012Q4

REPORT INFORMATION
  Report Type: 
  Country: EE (occurrence: EE)
  Receive Date: 20121218
  Receipt Date: 20121218
  Transmission Date: 20130627
  Serious: Yes (Life-Threatening, Hospitalization)
  Sender: FDA-Public Use
  Company Number: EE-B.I. PHARMACEUTICALS,INC./RIDGEFIELD-2012-AP-01117AP

PATIENT
  Age: 80 Year
  Sex: Female

DRUGS (5)
  1. PRADAXA [Suspect]
     Indication: ATRIAL FIBRILLATION
     Dosage: 75 mg
     Route: 048
     Dates: end: 20121114
  2. UNASYN 1000MG+500MG [Concomitant]
     Indication: URINARY TRACT INFECTION
     Dosage: 1.125 g
     Route: 042
     Dates: start: 20121114, end: 20121120
  3. PARACETAMOL [Concomitant]
     Indication: URINARY TRACT INFECTION
     Dosage: as required
     Route: 048
     Dates: start: 20121114, end: 20121120
  4. RAMIPRIL [Concomitant]
     Indication: HYPERTENSION
     Route: 048
  5. BETALOC ZOK [Concomitant]
     Indication: HYPERTENSION
     Route: 048

REACTIONS (1)
  - Cerebrovascular accident [Recovered/Resolved with Sequelae]
